FAERS Safety Report 25501887 (Version 1)
Quarter: 2025Q3

REPORT INFORMATION
  Report Type: Spontaneous
  Country: IL (occurrence: IL)
  Receive Date: 20250702
  Receipt Date: 20250702
  Transmission Date: 20251020
  Serious: Yes (Hospitalization, Other)
  Sender: NOVITIUM PHARMA
  Company Number: IL-NOVITIUMPHARMA-2025ILNVP01495

PATIENT
  Age: 64 Year
  Sex: Female

DRUGS (8)
  1. DEXAMETHASONE [Suspect]
     Active Substance: DEXAMETHASONE
     Indication: Colon cancer
  2. DEXAMETHASONE [Suspect]
     Active Substance: DEXAMETHASONE
     Indication: Metastases to central nervous system
  3. PEMETREXED [Concomitant]
     Active Substance: PEMETREXED
     Indication: Colon cancer
  4. PEMETREXED [Concomitant]
     Active Substance: PEMETREXED
     Indication: Metastases to central nervous system
  5. CISPLATIN [Concomitant]
     Active Substance: CISPLATIN
     Indication: Colon cancer
  6. CISPLATIN [Concomitant]
     Active Substance: CISPLATIN
     Indication: Metastases to central nervous system
  7. IRINOTECAN [Concomitant]
     Active Substance: IRINOTECAN
     Indication: Colon cancer
  8. IRINOTECAN [Concomitant]
     Active Substance: IRINOTECAN
     Indication: Metastases to central nervous system

REACTIONS (1)
  - Herpes simplex encephalitis [Recovering/Resolving]
